FAERS Safety Report 20569112 (Version 1)
Quarter: 2022Q1

REPORT INFORMATION
  Report Type: Spontaneous
  Country: GB (occurrence: GB)
  Receive Date: 20220308
  Receipt Date: 20220308
  Transmission Date: 20220423
  Serious: Yes (Other)
  Sender: FDA-Public Use
  Company Number: GB-BIOGEN-2022BI01103385

PATIENT
  Sex: Female

DRUGS (1)
  1. TYSABRI [Suspect]
     Active Substance: NATALIZUMAB
     Indication: Product used for unknown indication
     Route: 065
     Dates: start: 2009

REACTIONS (6)
  - Rhegmatogenous retinal detachment [Unknown]
  - Necrotising retinitis [Unknown]
  - Varicella zoster virus infection [Unknown]
  - Eye pain [Unknown]
  - Visual impairment [Unknown]
  - Optic neuritis [Unknown]

NARRATIVE: CASE EVENT DATE: 20220201
